FAERS Safety Report 14682700 (Version 1)
Quarter: 2018Q1

REPORT INFORMATION
  Report Type: Report from Study
  Country: BR (occurrence: BR)
  Receive Date: 20180327
  Receipt Date: 20180327
  Transmission Date: 20180509
  Serious: Yes (Other)
  Sender: FDA-Public Use
  Company Number: BR-ROCHE-2090867

PATIENT
  Sex: Female
  Weight: 66 kg

DRUGS (2)
  1. HERCEPTIN [Suspect]
     Active Substance: TRASTUZUMAB
     Indication: BREAST CANCER METASTATIC
     Dosage: NITIAL DOSE 8MG/KG; SUBSEQUENT CYCLES: 6MG/KG
     Route: 065
     Dates: start: 20160502, end: 20160925
  2. TAXOTERE [Concomitant]
     Active Substance: DOCETAXEL
     Indication: BREAST CANCER METASTATIC
     Route: 065
     Dates: start: 20160502, end: 20160925

REACTIONS (2)
  - Drug ineffective [Unknown]
  - Disease progression [Unknown]
